FAERS Safety Report 5238402-6 (Version None)
Quarter: 2007Q1

REPORT INFORMATION
  Report Type: 
  Country: None (occurrence: None)
  Receive Date: 20061208
  Receipt Date: 20050317
  Transmission Date: 20070707
  Serious: Yes (Other)
  Sender: FDA-Public Use
  Company Number: 2005UW04264

PATIENT
  Age: 42 Year
  Sex: Female
  Weight: 52.163 kg

DRUGS (2)
  1. CRESTOR [Suspect]
     Indication: BLOOD CHOLESTEROL INCREASED
     Dosage: 10 MG DAILY PO
     Route: 048
  2. ALLEGRA-D   /01367401/ [Concomitant]

REACTIONS (1)
  - TINNITUS [None]
